FAERS Safety Report 7172669-2 (Version None)
Quarter: 2010Q4

REPORT INFORMATION
  Report Type: 
  Country: None (occurrence: None)
  Receive Date: 20101217
  Receipt Date: 20101207
  Transmission Date: 20110411
  Serious: Yes (Hospitalization)
  Sender: FDA-Public Use
  Company Number: DE-AMGEN-DEUNI2010003309

PATIENT

DRUGS (12)
  1. DARBEPOETIN ALFA [Suspect]
     Indication: RENAL FAILURE CHRONIC
     Dosage: 15 A?G, QWK
     Route: 042
     Dates: start: 20040827
  2. DECORTIN [Concomitant]
  3. MAGNESIUM [Concomitant]
     Dosage: 10 MG, UNK
  4. BICA                               /00108001/ [Concomitant]
     Dosage: 1 G, UNK
  5. ROCALTROL [Concomitant]
     Dosage: 0.25 A?G, UNK
  6. CALCIUM [Concomitant]
     Dosage: 1.2 G, UNK
  7. GENOTROPIN [Concomitant]
     Dosage: 2 MG, UNK
  8. CALCIUM ACETATE [Concomitant]
     Dosage: 500 MG, UNK
  9. BUDENOFALK [Concomitant]
     Dosage: 3 MG, UNK
  10. LASIX [Concomitant]
  11. METOBETA [Concomitant]
  12. CYCLOSPORINE [Concomitant]

REACTIONS (1)
  - BLOOD CREATININE INCREASED [None]
